FAERS Safety Report 4972437-3 (Version None)
Quarter: 2006Q2

REPORT INFORMATION
  Report Type: 
  Country: None (occurrence: None)
  Receive Date: 20060413
  Receipt Date: 20050426
  Transmission Date: 20061013
  Serious: Yes (Hospitalization)
  Sender: FDA-Public Use
  Company Number: US-MERCK-0504USA04622

PATIENT
  Age: 52 Year
  Sex: Female
  Weight: 55 kg

DRUGS (6)
  1. VIOXX [Suspect]
     Indication: ARTHRITIS
     Route: 048
     Dates: start: 19990101
  2. VIOXX [Suspect]
     Route: 048
     Dates: end: 20010801
  3. VIOXX [Suspect]
     Indication: PAIN IN EXTREMITY
     Route: 048
     Dates: start: 20000802
  4. VIOXX [Suspect]
     Route: 048
     Dates: start: 19990101
  5. VIOXX [Suspect]
     Route: 048
     Dates: end: 20010801
  6. VIOXX [Suspect]
     Route: 048
     Dates: start: 20000802

REACTIONS (14)
  - ANGINA PECTORIS [None]
  - BACK DISORDER [None]
  - CARDIOVASCULAR DISORDER [None]
  - DRUG EFFECT DECREASED [None]
  - DYSLIPIDAEMIA [None]
  - FIBROMYALGIA [None]
  - GASTRITIS [None]
  - HEADACHE [None]
  - OSTEOMYELITIS [None]
  - OSTEOPOROSIS [None]
  - PERIPHERAL VASCULAR DISORDER [None]
  - SELF-MEDICATION [None]
  - THROMBOSIS [None]
  - URETHRAL STENOSIS [None]
